FAERS Safety Report 4955114-4 (Version None)
Quarter: 2006Q1

REPORT INFORMATION
  Report Type: 
  Country: None (occurrence: None)
  Receive Date: 20060322
  Receipt Date: 20060310
  Transmission Date: 20060701
  Serious: Yes (Disabling, Other)
  Sender: FDA-Public Use
  Company Number: US200603002857

PATIENT
  Age: 40 Year
  Sex: Female

DRUGS (1)
  1. XIGRIS [Suspect]
     Dates: start: 20060101

REACTIONS (7)
  - AMPUTATION [None]
  - ARM AMPUTATION [None]
  - DRUG EXPOSURE DURING PREGNANCY [None]
  - INTRA-UTERINE DEATH [None]
  - LEG AMPUTATION [None]
  - NASAL OPERATION [None]
  - THROMBOTIC MICROANGIOPATHY [None]
